FAERS Safety Report 21200521 (Version 2)
Quarter: 2023Q1

REPORT INFORMATION
  Report Type: Report from Study
  Country: US (occurrence: US)
  Receive Date: 20220811
  Receipt Date: 20230114
  Transmission Date: 20230417
  Serious: Yes (Hospitalization, Other)
  Sender: FDA-Public Use
  Company Number: US-NOVARTISPH-NVSC2022US181847

PATIENT
  Sex: Male

DRUGS (1)
  1. ENTRESTO [Suspect]
     Active Substance: SACUBITRIL\VALSARTAN
     Indication: Product used for unknown indication
     Dosage: UNK UNK, BID
     Route: 065
     Dates: start: 2019

REACTIONS (6)
  - COVID-19 [Unknown]
  - Cough [Unknown]
  - Dysphonia [Not Recovered/Not Resolved]
  - Blood glucose increased [Unknown]
  - Fluid retention [Unknown]
  - Diabetes mellitus [Unknown]
